FAERS Safety Report 8013786-4 (Version None)
Quarter: 2011Q4

REPORT INFORMATION
  Report Type: 
  Country: None (occurrence: None)
  Receive Date: 20111229
  Receipt Date: 20111226
  Transmission Date: 20120403
  Serious: Yes (Death, Life-Threatening, Other)
  Sender: FDA-Public Use
  Company Number: JP-PFIZER INC-2011272338

PATIENT
  Age: 86 Year
  Sex: Male
  Weight: 41 kg

DRUGS (7)
  1. ZYVOX [Suspect]
     Indication: PNEUMONIA
     Dosage: 600 MG, 2X/DAY
     Route: 041
     Dates: start: 20111102, end: 20111106
  2. INTRALIPID 10% [Concomitant]
     Indication: MALNUTRITION
     Dosage: 100 ML, 1X/DAY
     Route: 041
     Dates: start: 20111102, end: 20111105
  3. ZYVOX [Suspect]
     Dosage: 600 MG, 1X/DAY
     Route: 041
     Dates: start: 20111104, end: 20111107
  4. CIPROFLOXACIN HCL [Suspect]
     Indication: PNEUMONIA
     Dosage: 300 MG, DAILY
     Route: 042
     Dates: start: 20111102, end: 20111104
  5. ENALAPRIL MALEATE [Concomitant]
     Indication: HYPERTENSION
     Dosage: UNK
     Dates: start: 20111021, end: 20111030
  6. ZOSYN [Suspect]
     Indication: PNEUMONIA
     Dosage: 2.25 G, 3X/DAY
     Route: 041
     Dates: start: 20111104, end: 20111107
  7. INTRALIPID 10% [Concomitant]
     Indication: HYPOCHOLESTEROLAEMIA

REACTIONS (1)
  - ACUTE HEPATIC FAILURE [None]
